FAERS Safety Report 5143825-X (Version None)
Quarter: 2006Q4

REPORT INFORMATION
  Report Type: 
  Country: None (occurrence: None)
  Receive Date: 20061102
  Receipt Date: 20061102
  Transmission Date: 20070319
  Serious: Yes (Other)
  Sender: FDA-Public Use
  Company Number: None

PATIENT
  Age: 44 Year
  Sex: Male
  Weight: 127.0072 kg

DRUGS (1)
  1. AMOXICILLIN [Suspect]
     Indication: ACUTE SINUSITIS
     Dosage: 2 TABLETS TWICE DAILY PO
     Route: 048
     Dates: start: 20061024, end: 20061101

REACTIONS (2)
  - HYPERSENSITIVITY [None]
  - RASH [None]
